FAERS Safety Report 8237614-7 (Version None)
Quarter: 2012Q1

REPORT INFORMATION
  Report Type: 
  Country: None (occurrence: None)
  Receive Date: 20120323
  Receipt Date: 20120309
  Transmission Date: 20120608
  Serious: Yes (Other)
  Sender: FDA-Public Use
  Company Number: 2012AP000684

PATIENT
  Age: 50 Year
  Sex: Male

DRUGS (9)
  1. AMITRIPTYLINE HCL [Suspect]
     Indication: EMOTIONAL DISTRESS
     Dosage: UNKNOWN
  2. ZOPICLONE (ZOPICLONE) [Suspect]
     Indication: EMOTIONAL DISTRESS
     Dosage: UNKNOWN
  3. CIPROFLOXACIN [Suspect]
     Indication: PRODUCT USED FOR UNKNOWN INDICATION
     Dosage: UNKNOWN
  4. FLUOXETINE [Suspect]
     Indication: EMOTIONAL DISTRESS
     Dosage: UNKNOWN
  5. VENLAFAXINE [Suspect]
     Indication: EMOTIONAL DISTRESS
     Dosage: 300 MG, QD
  6. VALPROATE SODIUM [Suspect]
     Indication: PRODUCT USED FOR UNKNOWN INDICATION
     Dosage: 1000 MG
  7. DIAZEPAM [Suspect]
     Indication: EMOTIONAL DISTRESS
     Dosage: UNKNOWN
  8. ZOLPIDEM [Suspect]
     Indication: EMOTIONAL DISTRESS
     Dosage: UNKNOWN
  9. METOCLOPRAMIDE [Suspect]
     Indication: PRODUCT USED FOR UNKNOWN INDICATION
     Dosage: UNKNKOWN

REACTIONS (8)
  - INHIBITORY DRUG INTERACTION [None]
  - AKATHISIA [None]
  - DRUG LEVEL INCREASED [None]
  - OVERDOSE [None]
  - HOMICIDE [None]
  - SOMNAMBULISM [None]
  - AMNESIA [None]
  - TOXICITY TO VARIOUS AGENTS [None]
